FAERS Safety Report 8473201-3 (Version None)
Quarter: 2012Q2

REPORT INFORMATION
  Report Type: 
  Country: None (occurrence: None)
  Receive Date: 20120627
  Receipt Date: 20120625
  Transmission Date: 20120825
  Serious: Yes (Other)
  Sender: FDA-Public Use
  Company Number: US-PFIZER INC-2012060968

PATIENT
  Sex: Female

DRUGS (3)
  1. CELEBREX [Suspect]
     Dosage: UNK
  2. DETROL [Suspect]
     Dosage: UNK
  3. LYRICA [Suspect]
     Dosage: UNK

REACTIONS (6)
  - CEREBROVASCULAR ACCIDENT [None]
  - ARTHRALGIA [None]
  - INSOMNIA [None]
  - PAIN [None]
  - BACK PAIN [None]
  - FEELING ABNORMAL [None]
